FAERS Safety Report 7674376-6 (Version None)
Quarter: 2011Q3

REPORT INFORMATION
  Report Type: 
  Country: None (occurrence: None)
  Receive Date: 20110810
  Receipt Date: 20110808
  Transmission Date: 20111222
  Serious: Yes (Death)
  Sender: FDA-Public Use
  Company Number: US-SHIRE-ALL1-2011-02652

PATIENT
  Age: 54 Year
  Sex: Female

DRUGS (1)
  1. PENTASA [Suspect]
     Indication: PRODUCT USED FOR UNKNOWN INDICATION
     Dosage: 4000 MG, 1X/DAY:QD (EIGHT 500 MG PER DAY)
     Route: 065
     Dates: end: 20110526

REACTIONS (1)
  - DEATH [None]
